FAERS Safety Report 4374193-9 (Version None)
Quarter: 2004Q2

REPORT INFORMATION
  Report Type: 
  Country: None (occurrence: None)
  Receive Date: 20040603
  Receipt Date: 20040506
  Transmission Date: 20050107
  Serious: Yes (Life-Threatening)
  Sender: FDA-Public Use
  Company Number: MAG-2003-0000148

PATIENT
  Age: 1 Month
  Sex: Female
  Weight: 3.4 kg

DRUGS (1)
  1. POVIDONE IODINE [Suspect]
     Indication: CHYLOTHORAX
     Dosage: 5 ML, SINGLE, INTRAPLEURAL
     Route: 034
     Dates: start: 20030721, end: 20020722

REACTIONS (6)
  - ANURIA [None]
  - CARDIAC FIBROMA [None]
  - METABOLIC ACIDOSIS [None]
  - PERITONEAL DIALYSIS [None]
  - RENAL FAILURE NEONATAL [None]
  - RENAL TUBULAR NECROSIS [None]
